FAERS Safety Report 6719077-3 (Version None)
Quarter: 2010Q2

REPORT INFORMATION
  Report Type: 
  Country: None (occurrence: None)
  Receive Date: 20100511
  Receipt Date: 20100427
  Transmission Date: 20101027
  Serious: Yes (Other)
  Sender: FDA-Public Use
  Company Number: US-CELGENEUS-163-21880-10042401

PATIENT
  Age: 60 Year
  Sex: Female

DRUGS (8)
  1. REVLIMID [Suspect]
     Indication: MULTIPLE MYELOMA
     Route: 048
     Dates: start: 20070101
  2. REVLIMID [Suspect]
     Route: 048
     Dates: start: 20070101
  3. DEXAMETHASONE [Suspect]
     Indication: MULTIPLE MYELOMA
     Route: 065
     Dates: start: 20070101
  4. DEXAMETHASONE [Suspect]
     Route: 065
     Dates: start: 20070101
  5. MELPHALAN HYDROCHLORIDE [Concomitant]
     Indication: CHEMOTHERAPY
     Route: 065
     Dates: start: 20070901
  6. NEUPOGEN [Concomitant]
     Indication: DRUG USE FOR UNKNOWN INDICATION
     Route: 065
  7. STEROIDS [Concomitant]
     Indication: DRUG USE FOR UNKNOWN INDICATION
     Route: 065
  8. CAMPATH [Concomitant]
     Indication: DRUG USE FOR UNKNOWN INDICATION
     Route: 065

REACTIONS (1)
  - ENDOMETRIAL SARCOMA [None]
